FAERS Safety Report 4339528-1 (Version None)
Quarter: 2004Q2

REPORT INFORMATION
  Report Type: 
  Country: None (occurrence: None)
  Receive Date: 20040415
  Receipt Date: 20040331
  Transmission Date: 20050107
  Serious: Yes (Hospitalization, Other)
  Sender: FDA-Public Use
  Company Number: DE-BRISTOL-MYERS SQUIBB COMPANY-12554382

PATIENT
  Age: 74 Year
  Sex: Male

DRUGS (2)
  1. CETUXIMAB [Suspect]
     Indication: COLORECTAL CANCER
     Dosage: 1ST DOSE
     Route: 042
     Dates: start: 20040329, end: 20040329
  2. IRINOTECAN [Suspect]
     Indication: COLORECTAL CANCER
     Dosage: 1ST DOSE
     Route: 042
     Dates: start: 20040329, end: 20040329

REACTIONS (5)
  - CHILLS [None]
  - CYANOSIS [None]
  - HYPERSENSITIVITY [None]
  - PYREXIA [None]
  - TACHYCARDIA [None]
